FAERS Safety Report 6120331-7 (Version None)
Quarter: 2009Q1

REPORT INFORMATION
  Report Type: 
  Country: None (occurrence: None)
  Receive Date: 20090312
  Receipt Date: 20090312
  Transmission Date: 20090719
  Serious: Yes (Other)
  Sender: FDA-Public Use
  Company Number: None

PATIENT
  Sex: Male
  Weight: 26.3086 kg

DRUGS (1)
  1. RISPERIDONE [Suspect]
     Indication: AUTISM
     Dosage: 1 MG 1 ML SOLN 1.75 CC TWICE DAILY PO
     Route: 048
     Dates: start: 20080819

REACTIONS (3)
  - ABNORMAL BEHAVIOUR [None]
  - HALLUCINATION [None]
  - PRODUCT QUALITY ISSUE [None]
